FAERS Safety Report 4683015-8 (Version None)
Quarter: 2005Q2

REPORT INFORMATION
  Report Type: 
  Country: None (occurrence: None)
  Receive Date: 20050606
  Receipt Date: 20050204
  Transmission Date: 20051028
  Serious: Yes (Other)
  Sender: FDA-Public Use
  Company Number: US-MERCK-0502USA00655

PATIENT
  Age: 69 Year
  Sex: Male
  Weight: 89 kg

DRUGS (12)
  1. VIOXX [Suspect]
     Indication: ARTHRITIS
     Route: 048
     Dates: start: 20010205, end: 20041001
  2. NORVASC [Concomitant]
     Route: 065
  3. LIPITOR [Concomitant]
     Route: 065
     Dates: start: 20000601
  4. HYOSCYAMINE [Concomitant]
     Route: 065
  5. ATACAND [Concomitant]
     Route: 065
     Dates: start: 20001201
  6. VITAMIN E [Concomitant]
     Route: 065
  7. ASPIRIN [Concomitant]
     Indication: ANTICOAGULANT THERAPY
     Route: 065
     Dates: start: 19990101
  8. ASPIRIN [Concomitant]
     Route: 065
     Dates: start: 20030101
  9. TOPROL-XL [Concomitant]
     Indication: HYPERTENSION
     Route: 065
     Dates: start: 20001201
  10. CELEBREX [Concomitant]
     Route: 065
     Dates: start: 20020601
  11. ASCORBIC ACID [Concomitant]
     Route: 065
  12. DETROL LA [Concomitant]
     Route: 065

REACTIONS (9)
  - CATARACT [None]
  - DEPRESSION [None]
  - FALL [None]
  - ISCHAEMIC STROKE [None]
  - LACERATION [None]
  - LIMB INJURY [None]
  - LOW TENSION GLAUCOMA [None]
  - OPTIC ISCHAEMIC NEUROPATHY [None]
  - PAIN [None]
